FAERS Safety Report 23745933 (Version 1)
Quarter: 2024Q2

REPORT INFORMATION
  Report Type: Spontaneous
  Country: SE (occurrence: SE)
  Receive Date: 20240416
  Receipt Date: 20240416
  Transmission Date: 20240716
  Serious: Yes (Hospitalization, Other)
  Sender: FDA-Public Use
  Company Number: None

PATIENT

DRUGS (13)
  1. LAMOTRIGINE [Suspect]
     Active Substance: LAMOTRIGINE
     Indication: Product used for unknown indication
     Dosage: UNK
     Route: 065
  2. LITHIUM SULFATE [Suspect]
     Active Substance: LITHIUM SULFATE
     Indication: Bipolar disorder
     Dosage: UNK, BID(2 TAB EVERY MORNING. 2 TAB EVERY OTHER NIGHT AND 3 TAB EVERY OTHER NIGHT)
     Route: 048
     Dates: start: 20230815, end: 20231206
  3. QUETIAPINE [Suspect]
     Active Substance: QUETIAPINE
     Indication: Product used for unknown indication
     Dosage: UNK
     Route: 065
  4. LITHIUM SULFATE [Suspect]
     Active Substance: LITHIUM SULFATE
     Indication: Bipolar disorder
     Dosage: UNK (ON 01 SEP 2023 DOSE WAS CHANGED TO 2 X 2 DAILY WITH RE-SAMPLING AFTER ONE WEEK)
     Route: 048
     Dates: start: 20230901
  5. LITHIUM SULFATE [Suspect]
     Active Substance: LITHIUM SULFATE
     Dosage: UNK UNK, BID(1 TAB IN THE MORNING ,2 TAB IN THEEVENING
     Route: 048
     Dates: start: 20231212, end: 20231217
  6. LITHIUM SULFATE [Suspect]
     Active Substance: LITHIUM SULFATE
     Dosage: UNK (ON 24 OCT 2023  DOSE WAS INCREASE TO 2+0+3 TAB EVERY OTHER DAY,2X2 TAB PER DAY EVERY OTHER DAY)
     Route: 048
     Dates: start: 20231024
  7. ZOPICLONE [Concomitant]
     Active Substance: ZOPICLONE
     Indication: Product used for unknown indication
     Dosage: UNK (0.5 -1 IF NECESSARY AT NIGHT)
     Route: 048
     Dates: start: 2005
  8. ZOPICLONE [Concomitant]
     Active Substance: ZOPICLONE
     Indication: Sleep disorder
     Dosage: UNK
     Route: 065
  9. CALCIUM CARBONATE\CHOLECALCIFEROL [Concomitant]
     Active Substance: CALCIUM CARBONATE\CHOLECALCIFEROL
     Indication: Product used for unknown indication
     Dosage: 2 DF, QD (2 IN THE MORNING)
     Route: 065
     Dates: start: 20090311
  10. FOLIC ACID [Concomitant]
     Active Substance: FOLIC ACID
     Indication: Product used for unknown indication
     Dosage: UNK
     Route: 065
  11. BETOLVEX [Concomitant]
     Indication: Product used for unknown indication
     Dosage: 1 MG, QD (1 IN THE MORNING)
     Route: 048
     Dates: start: 20090311
  12. FOLSYRA EVOLAN [Concomitant]
     Indication: Product used for unknown indication
     Dosage: 5 MG, QD (1 IN THE MORNING)
     Route: 065
     Dates: start: 20090311
  13. CHOLECALCIFEROL [Concomitant]
     Active Substance: CHOLECALCIFEROL
     Indication: Product used for unknown indication
     Dosage: 1600 IU, QD (2 IN THE MORNING)
     Route: 048
     Dates: start: 20130301

REACTIONS (18)
  - Tunnel vision [Recovered/Resolved]
  - Hemiparesis [Recovered/Resolved]
  - Mastication disorder [Recovered/Resolved]
  - Dyskinesia [Recovered/Resolved]
  - Vertigo [Recovered/Resolved]
  - Diarrhoea [Recovered/Resolved]
  - Dizziness [Recovered/Resolved]
  - Dysphonia [Recovered/Resolved]
  - Toxicity to various agents [Recovered/Resolved]
  - Vomiting [Recovered/Resolved]
  - Antipsychotic drug level increased [Not Recovered/Not Resolved]
  - Abdominal pain [Recovered/Resolved]
  - Speech disorder [Recovered/Resolved]
  - Neurological symptom [Unknown]
  - Diplopia [Not Recovered/Not Resolved]
  - Dysphagia [Recovered/Resolved]
  - Gait disturbance [Recovered/Resolved]
  - Nausea [Recovered/Resolved]

NARRATIVE: CASE EVENT DATE: 20231125
